FAERS Safety Report 9262820 (Version 2)
Quarter: 2013Q3

REPORT INFORMATION
  Report Type: Spontaneous
  Country: GB (occurrence: GB)
  Receive Date: 20130430
  Receipt Date: 20130923
  Transmission Date: 20140515
  Serious: Yes (Other)
  Sender: FDA-Public Use
  Company Number: GB-JNJFOC-20130413634

PATIENT
  Sex: 0

DRUGS (5)
  1. ETRAVIRINE [Suspect]
     Indication: HIV INFECTION
     Route: 065
  2. TENOFOVIR [Interacting]
     Indication: HIV INFECTION
     Route: 065
  3. EMTRICITABINE [Interacting]
     Indication: HIV INFECTION
     Route: 065
  4. ABACAVIR [Interacting]
     Indication: HIV INFECTION
     Route: 065
  5. LAMIVUDINE [Interacting]
     Indication: HIV INFECTION
     Route: 065

REACTIONS (7)
  - Nephropathy toxic [Unknown]
  - Viraemia [Unknown]
  - Drug interaction [Unknown]
  - Adverse event [Unknown]
  - Diarrhoea [Unknown]
  - Transaminases increased [Unknown]
  - Treatment noncompliance [Unknown]
